FAERS Safety Report 24224364 (Version 1)
Quarter: 2024Q3

REPORT INFORMATION
  Report Type: Spontaneous
  Country: CN (occurrence: CN)
  Receive Date: 20240819
  Receipt Date: 20240819
  Transmission Date: 20241017
  Serious: Yes (Other)
  Sender: BAYER
  Company Number: CN-BAYER-2024A118645

PATIENT
  Age: 77 Year
  Sex: Male
  Weight: 56 kg

DRUGS (4)
  1. ULTRAVIST [Suspect]
     Active Substance: IOPROMIDE
     Indication: Arteriogram carotid
     Dosage: 100 ML, ONCE, DISSOLVED IN 0.9% SODIUM CHLORIDE INJECTION 250ML
     Route: 042
     Dates: start: 20240808, end: 20240808
  2. ULTRAVIST [Suspect]
     Active Substance: IOPROMIDE
     Indication: Computerised tomogram head
  3. ULTRAVIST [Suspect]
     Active Substance: IOPROMIDE
     Indication: Cerebral infarction
  4. ULTRAVIST [Suspect]
     Active Substance: IOPROMIDE
     Indication: Cerebral artery thrombosis

REACTIONS (5)
  - Aphasia [Recovered/Resolved]
  - Gait disturbance [Recovered/Resolved]
  - Muscular weakness [Recovered/Resolved]
  - Tremor [Recovered/Resolved]
  - Respiratory rate increased [None]

NARRATIVE: CASE EVENT DATE: 20240808
